FAERS Safety Report 6492403-9 (Version None)
Quarter: 2009Q4

REPORT INFORMATION
  Report Type: 
  Country: None (occurrence: None)
  Receive Date: 20091214
  Receipt Date: 20091202
  Transmission Date: 20100525
  Serious: Yes (Hospitalization, Other)
  Sender: FDA-Public Use
  Company Number: US-ROCHE-544259

PATIENT
  Sex: Female

DRUGS (7)
  1. PEG-INTERFERON A-2A (RO 25-8310) [Suspect]
     Indication: HEPATITIS C
     Dosage: FORM: PRE-FILLED SYRINGE, TAKEN FOR 9 WEEKS
     Route: 065
     Dates: start: 20071101
  2. PEG-INTERFERON A-2A (RO 25-8310) [Suspect]
     Route: 065
     Dates: start: 20080113, end: 20080608
  3. PEG-INTERFERON A-2A (RO 25-8310) [Suspect]
     Route: 065
     Dates: start: 20090118
  4. PEG-INTERFERON A-2A (RO 25-8310) [Suspect]
     Dosage: DOSE REDUCED
     Route: 065
     Dates: start: 20091102
  5. RIBAVIRIN [Suspect]
     Indication: HEPATITIS C
     Dosage: TAKEN FOR 9 WEEKS
     Route: 048
     Dates: start: 20071101
  6. RIBAVIRIN [Suspect]
     Route: 048
     Dates: start: 20080113, end: 20080608
  7. RIBAVIRIN [Suspect]
     Dosage: DIVIDED DOSES
     Route: 048
     Dates: start: 20090118

REACTIONS (6)
  - CHEST PAIN [None]
  - CONFUSIONAL STATE [None]
  - DYSPNOEA [None]
  - FATIGUE [None]
  - NEOPLASM [None]
  - WHITE BLOOD CELL COUNT DECREASED [None]
